FAERS Safety Report 6187265-3 (Version None)
Quarter: 2009Q2

REPORT INFORMATION
  Report Type: 
  Country: None (occurrence: None)
  Receive Date: 20090512
  Receipt Date: 20090504
  Transmission Date: 20091009
  Serious: Yes (Hospitalization)
  Sender: FDA-Public Use
  Company Number: US-ABBOTT-09P-163-0571781-00

PATIENT
  Sex: Male
  Weight: 78.542 kg

DRUGS (3)
  1. HUMIRA [Suspect]
     Indication: ANKYLOSING SPONDYLITIS
     Route: 058
     Dates: start: 20081101, end: 20090401
  2. HUMIRA [Suspect]
     Dates: start: 20090401
  3. ULTRAM [Suspect]
     Indication: DRUG USE FOR UNKNOWN INDICATION
     Dosage: 2 PILLS VERY 6 HRS WITH A MAX OF 6/24 HRS
     Dates: end: 20090503

REACTIONS (2)
  - CONVULSION [None]
  - DRUG INEFFECTIVE [None]
